FAERS Safety Report 6201481-3 (Version None)
Quarter: 2009Q2

REPORT INFORMATION
  Report Type: 
  Country: None (occurrence: None)
  Receive Date: 20090526
  Receipt Date: 20090519
  Transmission Date: 20091009
  Serious: Yes (Other)
  Sender: FDA-Public Use
  Company Number: BR-ROCHE-633852

PATIENT
  Sex: Female
  Weight: 87 kg

DRUGS (5)
  1. RIVOTRIL [Suspect]
     Indication: DRUG USE FOR UNKNOWN INDICATION
     Dosage: START DATE REPORTED AS 2004 OR 2005
     Route: 048
     Dates: start: 20040101
  2. RIVOTRIL [Suspect]
     Indication: SLEEP DISORDER THERAPY
     Dosage: DOSAGE REPORTED AS 2.5 MG/ML
     Route: 048
     Dates: start: 20090401
  3. RIVOTRIL [Suspect]
     Dosage: DOSAGE REPORTED AS 2.5 MG/ML
     Route: 048
  4. SERTRALINE HCL [Concomitant]
     Indication: ANXIETY
     Route: 048
     Dates: start: 20090201
  5. SIBUTRAMINE [Concomitant]
     Indication: ANXIETY
     Route: 048
     Dates: start: 20090401

REACTIONS (5)
  - DIZZINESS [None]
  - DRUG INEFFECTIVE [None]
  - FATIGUE [None]
  - OVERDOSE [None]
  - ULCER [None]
